FAERS Safety Report 20597183 (Version 2)
Quarter: 2022Q2

REPORT INFORMATION
  Report Type: Spontaneous
  Country: US (occurrence: US)
  Receive Date: 20220315
  Receipt Date: 20220408
  Transmission Date: 20220721
  Serious: No
  Sender: FDA-Public Use
  Company Number: US-PFIZER INC-202101006110

PATIENT
  Age: 69 Year

DRUGS (2)
  1. NICOTROL [Suspect]
     Active Substance: NICOTINE
     Dosage: UNK, AS NEEDED
  2. NICOTROL [Suspect]
     Active Substance: NICOTINE
     Dosage: UNK (QUANTITY FOR 90 DAYS: 504 CARTRIDGES X 3 REFILLS)

REACTIONS (2)
  - Cough [Unknown]
  - Feeling abnormal [Unknown]
